FAERS Safety Report 7602606-5 (Version None)
Quarter: 2011Q3

REPORT INFORMATION
  Report Type: 
  Country: None (occurrence: None)
  Receive Date: 20110712
  Receipt Date: 20110628
  Transmission Date: 20111222
  Serious: Yes (Death)
  Sender: FDA-Public Use
  Company Number: GB-RANBAXY-2011R1-43379

PATIENT
  Age: 86 Year
  Sex: Female

DRUGS (2)
  1. AMOXICILLIN AND CLAVULANATE POTASSIUM [Suspect]
     Indication: CHRONIC OBSTRUCTIVE PULMONARY DISEASE
     Dosage: 1 DF, 3/1DAY
     Route: 048
     Dates: start: 20100602, end: 20100609
  2. AMOXICILLIN AND CLAVULANATE POTASSIUM [Suspect]
     Indication: LOWER RESPIRATORY TRACT INFECTION
     Dosage: 1 DF, 3/1DAY
     Route: 048
     Dates: start: 20100615, end: 20100622

REACTIONS (5)
  - SEPSIS [None]
  - CHOLESTASIS [None]
  - SUBDURAL HAEMORRHAGE [None]
  - HEPATIC FAILURE [None]
  - PNEUMONIA [None]
